FAERS Safety Report 15418422 (Version 7)
Quarter: 2019Q1

REPORT INFORMATION
  Report Type: Report from Study
  Country: US (occurrence: US)
  Receive Date: 20180924
  Receipt Date: 20190325
  Transmission Date: 20190417
  Serious: Yes (Other)
  Sender: FDA-Public Use
  Company Number: US-PFIZER INC-2018209221

PATIENT
  Age: 79 Year
  Sex: Female

DRUGS (9)
  1. IBRANCE [Suspect]
     Active Substance: PALBOCICLIB
     Dosage: 125 MG, CYCLIC (DAILY 3 WEEKS ON AND 1 WEEK OFF)
     Route: 048
     Dates: start: 20181018, end: 20181107
  2. ANASTROZOLE. [Concomitant]
     Active Substance: ANASTROZOLE
     Dosage: UNK
     Dates: start: 20180808
  3. IBRANCE [Suspect]
     Active Substance: PALBOCICLIB
     Dosage: 125 MG, CYCLIC (DAILY 3 WEEKS ON AND 1 WEEK OFF)
     Route: 048
     Dates: start: 20180618, end: 20180805
  4. IBRANCE [Suspect]
     Active Substance: PALBOCICLIB
     Dosage: 125 MG, CYCLIC (DAILY 3 WEEKS ON AND 1 WEEK OFF)
     Route: 048
     Dates: start: 20180811
  5. IBRANCE [Suspect]
     Active Substance: PALBOCICLIB
     Dosage: 100 MG, CYCLIC (3 WEEKS ON AND 1 WEEK OFF )
     Route: 048
     Dates: start: 20181126
  6. IBRANCE [Suspect]
     Active Substance: PALBOCICLIB
     Dosage: 100 MG, CYCLIC (21 DAYS ON AND 7 DAYS OFF)
     Route: 048
     Dates: start: 20180515
  7. IBRANCE [Suspect]
     Active Substance: PALBOCICLIB
     Indication: BREAST CANCER FEMALE
     Dosage: 125 MG, CYCLIC (DAILY 3 WEEKS ON AND 1 WEEK OFF)
     Route: 048
     Dates: start: 20180511, end: 20180601
  8. ANASTROZOLE. [Concomitant]
     Active Substance: ANASTROZOLE
     Indication: HORMONE SUPPRESSION THERAPY
     Dosage: UNK
     Dates: end: 20180611
  9. ANASTROZOLE. [Concomitant]
     Active Substance: ANASTROZOLE
     Dosage: UNK
     Dates: start: 20180618, end: 20180804

REACTIONS (24)
  - Alopecia [Recovering/Resolving]
  - Tongue disorder [Recovered/Resolved]
  - Rash [Recovered/Resolved]
  - Dry skin [Not Recovered/Not Resolved]
  - Eye pain [Unknown]
  - White blood cell count decreased [Not Recovered/Not Resolved]
  - Lacrimation increased [Not Recovered/Not Resolved]
  - Ocular hyperaemia [Recovered/Resolved]
  - Condition aggravated [Not Recovered/Not Resolved]
  - Dry eye [Not Recovered/Not Resolved]
  - Eye irritation [Unknown]
  - Fatigue [Recovering/Resolving]
  - Neoplasm progression [Unknown]
  - Gingival pain [Recovered/Resolved]
  - Stomatitis [Unknown]
  - Angioedema [Unknown]
  - Pain in extremity [Recovered/Resolved]
  - Peripheral swelling [Unknown]
  - Vitreous floaters [Recovered/Resolved]
  - Eye swelling [Recovered/Resolved]
  - Gingival swelling [Recovered/Resolved]
  - Pain [Recovered/Resolved]
  - Skin exfoliation [Not Recovered/Not Resolved]
  - Vision blurred [Unknown]

NARRATIVE: CASE EVENT DATE: 2018
